FAERS Safety Report 22384790 (Version 7)
Quarter: 2024Q4

REPORT INFORMATION
  Report Type: Report from Study
  Country: CA (occurrence: CA)
  Receive Date: 20230530
  Receipt Date: 20241118
  Transmission Date: 20250114
  Serious: Yes (Other)
  Sender: TAKEDA
  Company Number: CA-TAKEDA-2020TUS041838

PATIENT
  Sex: Female

DRUGS (18)
  1. VEDOLIZUMAB [Suspect]
     Active Substance: VEDOLIZUMAB
     Indication: Colitis ulcerative
     Dosage: 300 MILLIGRAM
  2. VEDOLIZUMAB [Suspect]
     Active Substance: VEDOLIZUMAB
     Dosage: 300 MILLIGRAM
  3. VEDOLIZUMAB [Suspect]
     Active Substance: VEDOLIZUMAB
     Dosage: 300 MILLIGRAM
  4. VEDOLIZUMAB [Suspect]
     Active Substance: VEDOLIZUMAB
     Dosage: 300 MILLIGRAM
  5. VEDOLIZUMAB [Suspect]
     Active Substance: VEDOLIZUMAB
     Dosage: 300 MILLIGRAM
  6. VEDOLIZUMAB [Suspect]
     Active Substance: VEDOLIZUMAB
     Dosage: 300 MILLIGRAM
  7. VEDOLIZUMAB [Suspect]
     Active Substance: VEDOLIZUMAB
     Dosage: 300 MILLIGRAM
  8. VEDOLIZUMAB [Suspect]
     Active Substance: VEDOLIZUMAB
     Dosage: 300 MILLIGRAM
  9. VEDOLIZUMAB [Suspect]
     Active Substance: VEDOLIZUMAB
     Dosage: 300 MILLIGRAM
  10. VEDOLIZUMAB [Suspect]
     Active Substance: VEDOLIZUMAB
     Dosage: 300 MILLIGRAM
  11. VEDOLIZUMAB [Suspect]
     Active Substance: VEDOLIZUMAB
     Dosage: 300 MILLIGRAM
  12. PENTASA [Concomitant]
     Active Substance: MESALAMINE
     Dosage: UNK
  13. IMURAN [Concomitant]
     Active Substance: AZATHIOPRINE
     Dosage: UNK
  14. ASACOL [Concomitant]
     Active Substance: MESALAMINE
     Dosage: UNK
  15. SERTRALINE [Concomitant]
     Active Substance: SERTRALINE HYDROCHLORIDE
     Dosage: 200 MILLIGRAM
  16. QUETIAPINE [Concomitant]
     Active Substance: QUETIAPINE
     Dosage: 200 MILLIGRAM
  17. CYPROTERONE [Concomitant]
     Active Substance: CYPROTERONE
     Dosage: 12.5 MILLIGRAM
  18. ESTROGEL [Concomitant]
     Active Substance: ESTRADIOL
     Dosage: UNK
     Route: 061

REACTIONS (3)
  - Blood pressure increased [Not Recovered/Not Resolved]
  - Blood pressure diastolic increased [Unknown]
  - Heart rate increased [Unknown]
